FAERS Safety Report 8804416 (Version 3)
Quarter: 2015Q4

REPORT INFORMATION
  Report Type: Spontaneous
  Country: US (occurrence: US)
  Receive Date: 20120924
  Receipt Date: 20151228
  Transmission Date: 20160305
  Serious: Yes (Hospitalization, Other)
  Sender: FDA-Public Use
  Company Number: US-BAYER-2012-097974

PATIENT
  Age: 39 Year
  Sex: Female
  Weight: 67.75 kg

DRUGS (10)
  1. YAZ [Suspect]
     Active Substance: DROSPIRENONE\ETHINYL ESTRADIOL
  2. ROCEPHIN [Concomitant]
     Active Substance: CEFTRIAXONE SODIUM
  3. YASMIN [Suspect]
     Active Substance: DROSPIRENONE\ETHINYL ESTRADIOL
  4. ZOFRAN [Concomitant]
     Active Substance: ONDANSETRON HYDROCHLORIDE
  5. ABILIT [Concomitant]
     Active Substance: SULPIRIDE
  6. OCELLA [Suspect]
     Active Substance: DROSPIRENONE\ETHINYL ESTRADIOL
  7. PAXIL [Concomitant]
     Active Substance: PAROXETINE HYDROCHLORIDE
  8. FLEXERIL [Concomitant]
     Active Substance: CYCLOBENZAPRINE HYDROCHLORIDE
     Indication: MUSCLE RELAXANT THERAPY
     Dosage: UNK
     Dates: start: 20090216
  9. RESTORIL [Concomitant]
     Active Substance: TEMAZEPAM
  10. MORPHINE [Concomitant]
     Active Substance: MORPHINE

REACTIONS (4)
  - Transient ischaemic attack [None]
  - Ischaemic stroke [None]
  - Embolism arterial [None]
  - Injury [None]

NARRATIVE: CASE EVENT DATE: 200902
